FAERS Safety Report 24352276 (Version 1)
Quarter: 2024Q3

REPORT INFORMATION
  Report Type: Spontaneous
  Country: US (occurrence: US)
  Receive Date: 20240923
  Receipt Date: 20240923
  Transmission Date: 20241017
  Serious: No
  Sender: PERRIGO
  Company Number: US-PERRIGO-24US007967

PATIENT
  Age: 66 Year
  Sex: Female
  Weight: 48.526 kg

DRUGS (8)
  1. NASONEX [Suspect]
     Active Substance: MOMETASONE FUROATE
     Indication: Seasonal allergy
     Dosage: 200 MCG, QD
     Route: 045
     Dates: start: 20240702, end: 20240810
  2. NASONEX [Suspect]
     Active Substance: MOMETASONE FUROATE
     Dosage: 200 MCG, QD
     Route: 045
     Dates: start: 20240817, end: 20240820
  3. NASONEX [Suspect]
     Active Substance: MOMETASONE FUROATE
     Dosage: 200 MCG, QD
     Route: 045
     Dates: start: 20240702, end: 20240810
  4. NASONEX [Suspect]
     Active Substance: MOMETASONE FUROATE
     Dosage: 200 MCG, QD
     Route: 045
     Dates: start: 20240817, end: 20240820
  5. NASONEX [Suspect]
     Active Substance: MOMETASONE FUROATE
     Dosage: 200 MCG, QD
     Route: 045
     Dates: start: 20240702, end: 20240810
  6. NASONEX [Suspect]
     Active Substance: MOMETASONE FUROATE
     Dosage: 200 MCG, QD
     Route: 045
     Dates: start: 20240817, end: 20240820
  7. OMEPRAZOLE [Concomitant]
     Active Substance: OMEPRAZOLE
     Indication: Gastrooesophageal reflux disease
     Dosage: UNK
     Route: 065
     Dates: start: 2004
  8. LEVOTHYROXINE [Concomitant]
     Active Substance: LEVOTHYROXINE\LEVOTHYROXINE SODIUM
     Indication: Thyroid disorder
     Dosage: UNK
     Route: 065
     Dates: start: 2004

REACTIONS (1)
  - Headache [Recovered/Resolved]

NARRATIVE: CASE EVENT DATE: 20240801
